FAERS Safety Report 5626894-X (Version None)
Quarter: 2008Q1

REPORT INFORMATION
  Report Type: 
  Country: None (occurrence: None)
  Receive Date: 20080212
  Receipt Date: 20080201
  Transmission Date: 20080703
  Serious: Yes (Hospitalization)
  Sender: FDA-Public Use
  Company Number: 231233J08USA

PATIENT
  Age: 52 Year
  Sex: Female

DRUGS (8)
  1. REBIF [Suspect]
     Indication: MULTIPLE SCLEROSIS
     Dosage: 44 MCG; 22 MCG; 33 MCG, 3 IN 1 WEEKS, SUBCUTANEOUS; 22 MCG
     Route: 058
     Dates: start: 20070622, end: 20070801
  2. REBIF [Suspect]
     Indication: MULTIPLE SCLEROSIS
     Dosage: 44 MCG; 22 MCG; 33 MCG, 3 IN 1 WEEKS, SUBCUTANEOUS; 22 MCG
     Route: 058
     Dates: start: 20070801, end: 20071201
  3. REBIF [Suspect]
     Indication: MULTIPLE SCLEROSIS
     Dosage: 44 MCG; 22 MCG; 33 MCG, 3 IN 1 WEEKS, SUBCUTANEOUS; 22 MCG
     Route: 058
     Dates: start: 20071201, end: 20080101
  4. REBIF [Suspect]
     Indication: MULTIPLE SCLEROSIS
     Dosage: 44 MCG; 22 MCG; 33 MCG, 3 IN 1 WEEKS, SUBCUTANEOUS; 22 MCG
     Route: 058
     Dates: start: 20080101
  5. ALEVE [Suspect]
     Indication: INFLUENZA LIKE ILLNESS
  6. CLONIDINE [Concomitant]
  7. TWO UNSPECIFIED BLOOD PRESSURE MEDICATIONS (ANTIHYPERTENSIVES) [Concomitant]
  8. GLUCOPHAGE [Concomitant]

REACTIONS (8)
  - CONDITION AGGRAVATED [None]
  - HEPATIC STEATOSIS [None]
  - INFLUENZA LIKE ILLNESS [None]
  - LARGE INTESTINAL ULCER [None]
  - MULTIPLE SCLEROSIS [None]
  - OESOPHAGEAL ULCER [None]
  - PYREXIA [None]
  - TREMOR [None]
